FAERS Safety Report 14681078 (Version 1)
Quarter: 2018Q1

REPORT INFORMATION
  Report Type: Spontaneous
  Country: PL (occurrence: PL)
  Receive Date: 20180326
  Receipt Date: 20180326
  Transmission Date: 20180509
  Serious: Yes (Hospitalization)
  Sender: FDA-Public Use
  Company Number: PHHY2018PL043088

PATIENT
  Age: 39 Year
  Sex: Female

DRUGS (2)
  1. ETHYL ALCOHOL [Interacting]
     Active Substance: ALCOHOL
     Indication: PRODUCT USED FOR UNKNOWN INDICATION
     Dosage: UNK (UNKNOWN AMOUNT)
     Route: 065
  2. TIZANIDINE. [Suspect]
     Active Substance: TIZANIDINE
     Indication: PRODUCT USED FOR UNKNOWN INDICATION
     Dosage: 6 DF (6 TABLETS 4 MG EACH), UNK
     Route: 065

REACTIONS (7)
  - Overdose [Unknown]
  - Sinus tachycardia [Unknown]
  - Hypokinesia [Unknown]
  - Chest pain [Unknown]
  - Suicide attempt [Unknown]
  - Myocardial ischaemia [Unknown]
  - Toxicity to various agents [Unknown]
